FAERS Safety Report 16538472 (Version 1)
Quarter: 2019Q3

REPORT INFORMATION
  Report Type: Spontaneous
  Country: US (occurrence: US)
  Receive Date: 20190524
  Receipt Date: 20190524
  Transmission Date: 20191004
  Serious: No
  Sender: FDA-Public Use
  Company Number: None

PATIENT
  Age: 50 Year
  Sex: Female
  Weight: 83.01 kg

DRUGS (6)
  1. COPAXONE SQ SYRINGE [Concomitant]
  2. MODAFINIL. [Concomitant]
     Active Substance: MODAFINIL
  3. XANAX [Concomitant]
     Active Substance: ALPRAZOLAM
  4. GLATIRAMER ACETATE. [Suspect]
     Active Substance: GLATIRAMER ACETATE
     Indication: MULTIPLE SCLEROSIS
     Dosage: ?          QUANTITY:40 MG MILLIGRAM(S);?
     Route: 058
     Dates: start: 201805, end: 201805
  5. CYMBALTA [Concomitant]
     Active Substance: DULOXETINE HYDROCHLORIDE
  6. CYANOCOBALAMIN. [Concomitant]
     Active Substance: CYANOCOBALAMIN

REACTIONS (1)
  - Injection site reaction [None]

NARRATIVE: CASE EVENT DATE: 20190408
